FAERS Safety Report 4636237-6 (Version None)
Quarter: 2005Q2

REPORT INFORMATION
  Report Type: 
  Country: None (occurrence: None)
  Receive Date: 20050413
  Receipt Date: 20050413
  Transmission Date: 20051028
  Serious: No
  Sender: FDA-Public Use
  Company Number: None

PATIENT
  Age: 78 Year
  Weight: 64 kg

DRUGS (1)
  1. TEQUIN [Suspect]
     Dosage: 400 MG  DAILY  INTRAVENOU
     Route: 042
     Dates: start: 20050223, end: 20050224

REACTIONS (1)
  - HYPOGLYCAEMIA [None]
